FAERS Safety Report 21439974 (Version 1)
Quarter: 2022Q4

REPORT INFORMATION
  Report Type: Spontaneous
  Country: US (occurrence: US)
  Receive Date: 20221011
  Receipt Date: 20221011
  Transmission Date: 20230113
  Serious: No
  Sender: FDA-Public Use
  Company Number: US-MORPHOSYS US-2022-MOR001589-US

PATIENT
  Age: 79 Year
  Sex: Female

DRUGS (1)
  1. MONJUVI [Suspect]
     Active Substance: TAFASITAMAB-CXIX
     Indication: Product used for unknown indication
     Dosage: 12 MILLIGRAM/KILOGRAM
     Dates: end: 20220214

REACTIONS (1)
  - Activated partial thromboplastin time prolonged [Unknown]
